FAERS Safety Report 11349938 (Version 1)
Quarter: 2015Q3

REPORT INFORMATION
  Report Type: Spontaneous
  Country: AT (occurrence: AT)
  Receive Date: 20150807
  Receipt Date: 20150807
  Transmission Date: 20151125
  Serious: Yes (Hospitalization)
  Sender: FDA-Public Use
  Company Number: AT-ABBVIE-15P-009-1440647-00

PATIENT
  Sex: Female

DRUGS (1)
  1. DUODOPA [Suspect]
     Active Substance: CARBIDOPA\LEVODOPA
     Indication: PARKINSON^S DISEASE
     Dosage: MD: 3.0 ML?CR1: 2.6 ML/H;?CR2: 2.2 ML/H?ED: 1.5 ML?24H THERAPY
     Route: 050
     Dates: start: 20131105

REACTIONS (2)
  - Fall [Recovered/Resolved]
  - Device dislocation [Unknown]
